FAERS Safety Report 14553204 (Version 1)
Quarter: 2018Q1

REPORT INFORMATION
  Report Type: Spontaneous
  Country: US (occurrence: US)
  Receive Date: 20180220
  Receipt Date: 20180220
  Transmission Date: 20180509
  Serious: Yes (Other)
  Sender: FDA-Public Use
  Company Number: US-BAYER-2018-029342

PATIENT
  Age: 75 Year
  Sex: Female
  Weight: 43 kg

DRUGS (7)
  1. VITAMIN B12 [Concomitant]
     Active Substance: CYANOCOBALAMIN
     Dosage: UNK
  2. BIOTIN [Concomitant]
     Active Substance: BIOTIN
  3. DENOSUMAB [Concomitant]
     Active Substance: DENOSUMAB
  4. TRAMADOL. [Concomitant]
     Active Substance: TRAMADOL
     Dosage: UNK
  5. CITRACAL PETITES [Suspect]
     Active Substance: CALCIUM CITRATE
     Dosage: UNK
     Route: 048
  6. ALEVE [Suspect]
     Active Substance: NAPROXEN SODIUM
     Indication: PAIN
     Dosage: UNK
     Route: 048
  7. VITAMIN D [Concomitant]
     Active Substance: CHOLECALCIFEROL

REACTIONS (5)
  - Incorrect drug administration duration [Unknown]
  - Foreign body in respiratory tract [Recovered/Resolved]
  - Choking [Recovered/Resolved]
  - Incorrect dosage administered [Unknown]
  - Fear [Unknown]
